FAERS Safety Report 6466654-3 (Version None)
Quarter: 2009Q4

REPORT INFORMATION
  Report Type: 
  Country: None (occurrence: None)
  Receive Date: 20091202
  Receipt Date: 20081111
  Transmission Date: 20100525
  Serious: No
  Sender: FDA-Public Use
  Company Number: US-AMGEN-KDL318535

PATIENT
  Sex: Female

DRUGS (2)
  1. ENBREL [Suspect]
     Indication: JUVENILE ARTHRITIS
     Route: 058
     Dates: start: 20081110
  2. METHOTREXATE [Concomitant]

REACTIONS (4)
  - DIARRHOEA [None]
  - LETHARGY [None]
  - NAUSEA [None]
  - VOMITING [None]
